FAERS Safety Report 7642018-1 (Version None)
Quarter: 2011Q3

REPORT INFORMATION
  Report Type: 
  Country: None (occurrence: None)
  Receive Date: 20110728
  Receipt Date: 20110726
  Transmission Date: 20111222
  Serious: Yes (Death)
  Sender: FDA-Public Use
  Company Number: JP-PFIZER INC-2011123054

PATIENT
  Age: 73 Year
  Sex: Male

DRUGS (9)
  1. WARFARIN [Concomitant]
     Dosage: UNK
     Route: 048
     Dates: start: 20010801, end: 20090518
  2. RABEPRAZOLE SODIUM [Concomitant]
     Dosage: UNK
     Route: 048
     Dates: start: 20010801, end: 20090518
  3. CARELOAD [Concomitant]
     Indication: PULMONARY HYPERTENSION
     Dosage: UNK
     Route: 048
     Dates: end: 20090518
  4. BUFFERIN [Concomitant]
     Dosage: UNK
     Route: 048
     Dates: start: 20010801, end: 20090518
  5. TRACLEER [Concomitant]
     Indication: PULMONARY HYPERTENSION
     Dosage: UNK
     Route: 048
     Dates: end: 20100705
  6. CARVEDILOL [Concomitant]
     Dosage: UNK
     Route: 048
     Dates: start: 20010801, end: 20090518
  7. CANDESARTAN CILEXETIL [Concomitant]
     Dosage: UNK
     Route: 048
     Dates: start: 20010801, end: 20090518
  8. HALCION [Concomitant]
     Dosage: UNK
     Dates: end: 20090518
  9. SILDENAFIL CITRATE [Suspect]
     Indication: PULMONARY HYPERTENSION
     Dosage: 20 MG, 3X/DAY
     Route: 048
     Dates: start: 20080723, end: 20090518

REACTIONS (1)
  - PULMONARY THROMBOSIS [None]
